FAERS Safety Report 22370864 (Version 3)
Quarter: 2023Q4

REPORT INFORMATION
  Report Type: Report from Study
  Country: US (occurrence: US)
  Receive Date: 20230526
  Receipt Date: 20231227
  Transmission Date: 20240109
  Serious: Yes (Other)
  Sender: FDA-Public Use
  Company Number: US-PFIZER INC-PV202300049124

PATIENT

DRUGS (1)
  1. KETAMINE HYDROCHLORIDE [Suspect]
     Active Substance: KETAMINE HYDROCHLORIDE
     Indication: Sickle cell anaemia with crisis
     Dosage: INFUSION
     Route: 041

REACTIONS (2)
  - Hallucination, visual [Unknown]
  - Hallucination, auditory [Unknown]
